FAERS Safety Report 6357771-7 (Version None)
Quarter: 2009Q3

REPORT INFORMATION
  Report Type: 
  Country: None (occurrence: None)
  Receive Date: 20090911
  Receipt Date: 20090901
  Transmission Date: 20100115
  Serious: Yes (Hospitalization)
  Sender: FDA-Public Use
  Company Number: 2009AL005742

PATIENT
  Age: 42 Year
  Sex: Female

DRUGS (6)
  1. LORAZEPAM [Suspect]
     Indication: PSYCHOTIC DISORDER
     Dosage: 0.5 MG; BID; PO
     Route: 048
  2. VALPROIC ACID [Concomitant]
  3. TOPIRAMATE [Concomitant]
  4. DULOXETINE [Concomitant]
  5. QUETIAPINE FUMARATE [Concomitant]
  6. ZIPRASIDONE HCL [Concomitant]

REACTIONS (13)
  - ACTIVITIES OF DAILY LIVING IMPAIRED [None]
  - AGGRESSION [None]
  - AGITATION [None]
  - COGNITIVE DISORDER [None]
  - CONFUSIONAL STATE [None]
  - DELIRIUM [None]
  - EMOTIONAL DISTRESS [None]
  - HALLUCINATION, AUDITORY [None]
  - MEMORY IMPAIRMENT [None]
  - NEUROLEPTIC MALIGNANT SYNDROME [None]
  - PSYCHOTIC DISORDER [None]
  - REFUSAL OF TREATMENT BY PATIENT [None]
  - THINKING ABNORMAL [None]
